FAERS Safety Report 4635020-5 (Version None)
Quarter: 2005Q2

REPORT INFORMATION
  Report Type: 
  Country: None (occurrence: None)
  Receive Date: 20050414
  Receipt Date: 20050401
  Transmission Date: 20051028
  Serious: Yes (Other)
  Sender: FDA-Public Use
  Company Number: FR-JNJFOC-20050400784

PATIENT
  Age: 35 Year
  Sex: Female
  Weight: 64 kg

DRUGS (1)
  1. INFLIXIMAB [Suspect]
     Indication: RHEUMATOID ARTHRITIS
     Route: 042

REACTIONS (4)
  - INFUSION RELATED REACTION [None]
  - LARYNX IRRITATION [None]
  - LOCALISED OEDEMA [None]
  - URTICARIA [None]
